FAERS Safety Report 4577485-3 (Version None)
Quarter: 2005Q1

REPORT INFORMATION
  Report Type: 
  Country: None (occurrence: None)
  Receive Date: 20050208
  Receipt Date: 20050127
  Transmission Date: 20050727
  Serious: Yes (Other)
  Sender: FDA-Public Use
  Company Number: 2005020483

PATIENT
  Age: 31 Year
  Sex: Female

DRUGS (6)
  1. ATARAX [Suspect]
     Indication: ILL-DEFINED DISORDER
     Dosage: (3 IN 7 D), ORAL
     Route: 048
  2. MEPRONIZINE (ACEPROMETAZINE, MEPROBAMATE) [Suspect]
     Indication: ILL-DEFINED DISORDER
     Dosage: (1 IN 1 D), ORAL
     Route: 048
     Dates: end: 20041220
  3. PAROXETINE HCL [Suspect]
     Indication: ILL-DEFINED DISORDER
     Dosage: (2 IN 1 D), ORAL
     Route: 048
     Dates: end: 20041220
  4. ALPRAZOLAM (ALPRAZOLAM) [Concomitant]
  5. ETHANOL (ETHANOL) [Concomitant]
  6. DI-GESIC (DEXTROPROPOXYPHENE, PARACETAMOL) [Concomitant]

REACTIONS (6)
  - ALCOHOL USE [None]
  - BRONCHITIS [None]
  - DRUG EXPOSURE DURING PREGNANCY [None]
  - PREGNANCY [None]
  - SMOKER [None]
  - SUICIDE ATTEMPT [None]
